FAERS Safety Report 20546774 (Version 1)
Quarter: 2022Q1

REPORT INFORMATION
  Report Type: Spontaneous
  Country: DE (occurrence: DE)
  Receive Date: 20220303
  Receipt Date: 20220303
  Transmission Date: 20220424
  Serious: Yes (Other)
  Sender: FDA-Public Use
  Company Number: None

PATIENT
  Age: 66 Year
  Sex: Female
  Weight: 66 kg

DRUGS (13)
  1. ATORVASTATIN [Suspect]
     Active Substance: ATORVASTATIN
     Indication: Hypercholesterolaemia
     Dosage: 30 MG; ATORVASTATIN ABZ 30 MG
  2. ATORVASTATIN [Suspect]
     Active Substance: ATORVASTATIN
     Indication: Low density lipoprotein increased
     Dosage: 30 MILLIGRAM DAILY; DAILY/EVENING; ATORVASTATIN ARISTO 30 MG FILM-COATED TABLETS
     Route: 048
     Dates: start: 20190701, end: 20210901
  3. XIPAMIDE [Concomitant]
     Active Substance: XIPAMIDE
     Dosage: XIPAMID 10 MG
  4. DULCOLAX NOS [Concomitant]
     Active Substance: BISACODYL OR DOCUSATE SODIUM
     Dosage: 0-0-3 TO 4DF; DULCOLAX 100 MG
  5. PANKREATAN [Concomitant]
     Indication: Pancreatic failure
     Dosage: EACH WITH MEALS; PANKREATAN 10.000
  6. BISOPROLOL [Concomitant]
     Active Substance: BISOPROLOL
     Indication: Hypertension
     Dosage: 5 MILLIGRAM DAILY; 1-0-1; BISOPROLOL CT 2.5 MG
  7. LEVOTHYROXINE SODIUM [Concomitant]
     Active Substance: LEVOTHYROXINE SODIUM
     Dosage: 50 MICROGRAM DAILY; 1-0-0; L-THYROXIN 50 UG
  8. FERRO-SANOL DUODENAL [Concomitant]
     Active Substance: FERROUS GLYCINE SULFATE
     Dosage: 100 MILLIGRAM DAILY; 0-0-1; FERRO SANOL DUODENAL 100 MG
  9. SODIUM PICOSULFATE [Concomitant]
     Active Substance: SODIUM PICOSULFATE
     Dosage: 12 GTT DAILY; 0-0-12; LAXOBERAL DROPS
  10. DOMPERIDONE [Concomitant]
     Active Substance: DOMPERIDONE
     Dosage: DOMPERIDONE 10 MG
  11. BIOTIN [Concomitant]
     Active Substance: BIOTIN
     Dosage: 10 MILLIGRAM DAILY; 1-0-0; BIOTIN 10 MG
  12. SUMATRIPTAN [Concomitant]
     Active Substance: SUMATRIPTAN
     Dosage: SUMATRIPTAN 100 MG
  13. Unizinc [Concomitant]
     Dosage: 50 MILLIGRAM DAILY; 1-0-0; UNIZINC 50 MG

REACTIONS (11)
  - Liver disorder [Recovered/Resolved]
  - Gamma-glutamyltransferase increased [Recovered/Resolved]
  - Alanine aminotransferase increased [Recovered/Resolved]
  - Food intolerance [Recovering/Resolving]
  - Muscle spasms [Recovering/Resolving]
  - Fatigue [Recovering/Resolving]
  - Myalgia [Recovering/Resolving]
  - General physical health deterioration [Unknown]
  - Aspartate aminotransferase increased [Recovered/Resolved]
  - Chills [Unknown]
  - Nausea [Recovering/Resolving]

NARRATIVE: CASE EVENT DATE: 20210701
